FAERS Safety Report 13416881 (Version 2)
Quarter: 2017Q2

REPORT INFORMATION
  Report Type: Report from Study
  Country: US (occurrence: US)
  Receive Date: 20170406
  Receipt Date: 20170428
  Transmission Date: 20170830
  Serious: Yes (Death, Hospitalization)
  Sender: FDA-Public Use
  Company Number: US-B.I. PHARMACEUTICALS,INC./RIDGEFIELD-2017-BI-019167

PATIENT
  Age: 63 Year
  Sex: Female
  Weight: 103.78 kg

DRUGS (1)
  1. AFATINIB [Suspect]
     Active Substance: AFATINIB
     Indication: INVASIVE DUCTAL BREAST CARCINOMA
     Route: 048
     Dates: start: 20170126, end: 20170308

REACTIONS (10)
  - Blood bilirubin increased [Unknown]
  - Localised oedema [Unknown]
  - Aspartate aminotransferase increased [Fatal]
  - Multiple organ dysfunction syndrome [Fatal]
  - Chromaturia [Unknown]
  - International normalised ratio increased [Unknown]
  - Alanine aminotransferase increased [Fatal]
  - Flank pain [Unknown]
  - Malignant neoplasm progression [Fatal]
  - Blood creatinine increased [Unknown]

NARRATIVE: CASE EVENT DATE: 20170301
